FAERS Safety Report 4463547-8 (Version None)
Quarter: 2004Q3

REPORT INFORMATION
  Report Type: 
  Country: None (occurrence: None)
  Receive Date: 20040928
  Receipt Date: 20040907
  Transmission Date: 20050211
  Serious: Yes (Hospitalization)
  Sender: FDA-Public Use
  Company Number: 2004031489

PATIENT
  Age: 60 Year
  Sex: Female

DRUGS (3)
  1. CARDENALIN (DOXAZOSIN) [Suspect]
     Indication: HYPERTENSION
     Dosage: 1 MG (1 IN 1 D), ORAL
     Route: 048
     Dates: start: 20040312, end: 20040410
  2. AMLODIPINE BESYLATE [Concomitant]
  3. ETIZOLAM (ETIZOLAM) [Concomitant]

REACTIONS (4)
  - ALANINE AMINOTRANSFERASE INCREASED [None]
  - ASPARTATE AMINOTRANSFERASE INCREASED [None]
  - BILE DUCT STONE [None]
  - CHOLELITHIASIS [None]
